FAERS Safety Report 6843313-6 (Version None)
Quarter: 2010Q3

REPORT INFORMATION
  Report Type: 
  Country: None (occurrence: None)
  Receive Date: 20100715
  Receipt Date: 20100709
  Transmission Date: 20110219
  Serious: No
  Sender: FDA-Public Use
  Company Number: 2008BI022814

PATIENT
  Sex: Female

DRUGS (2)
  1. TYSABRI [Suspect]
     Indication: MULTIPLE SCLEROSIS
     Route: 042
     Dates: start: 20080827, end: 20090901
  2. TYSABRI [Suspect]
     Route: 042
     Dates: start: 20091201, end: 20100414

REACTIONS (14)
  - ABDOMINAL PAIN UPPER [None]
  - ABNORMAL DREAMS [None]
  - ADVERSE DRUG REACTION [None]
  - CHEST DISCOMFORT [None]
  - CONTUSION [None]
  - DISTURBANCE IN ATTENTION [None]
  - DIZZINESS [None]
  - DYSPNOEA [None]
  - ERYTHEMA [None]
  - HEADACHE [None]
  - HYPOTENSION [None]
  - MENTAL IMPAIRMENT [None]
  - OROPHARYNGEAL BLISTERING [None]
  - VIRAL INFECTION [None]
